FAERS Safety Report 10335539 (Version 2)
Quarter: 2014Q3

REPORT INFORMATION
  Report Type: Spontaneous
  Country: US (occurrence: US)
  Receive Date: 20140723
  Receipt Date: 20140723
  Transmission Date: 20150326
  Serious: Yes (Hospitalization)
  Sender: FDA-Public Use
  Company Number: US-UNITED THERAPEUTICS-UTC-046650

PATIENT
  Age: 31 Year
  Sex: Female
  Weight: 79.83 kg

DRUGS (2)
  1. TYVASO [Suspect]
     Active Substance: TREPROSTINIL
     Dosage: 18-54 MCG
     Dates: start: 20130128
  2. LETAIRIS [Concomitant]
     Active Substance: AMBRISENTAN

REACTIONS (5)
  - Vomiting [Unknown]
  - Haemoptysis [Unknown]
  - Nausea [Unknown]
  - Decreased appetite [Unknown]
  - Pneumonia [Unknown]

NARRATIVE: CASE EVENT DATE: 20140307
